FAERS Safety Report 23335352 (Version 2)
Quarter: 2024Q1

REPORT INFORMATION
  Report Type: Spontaneous
  Country: JP (occurrence: JP)
  Receive Date: 20231225
  Receipt Date: 20240130
  Transmission Date: 20240410
  Serious: Yes (Hospitalization, Other)
  Sender: FDA-Public Use
  Company Number: JP-TAKEDA-2023TJP011760

PATIENT
  Age: 48 Year
  Sex: Female

DRUGS (4)
  1. TEDUGLUTIDE [Suspect]
     Active Substance: TEDUGLUTIDE
     Indication: Product used for unknown indication
     Dosage: 0.25 MILLILITER, QD
     Route: 058
     Dates: start: 20230817
  2. TEDUGLUTIDE [Suspect]
     Active Substance: TEDUGLUTIDE
     Indication: Product used for unknown indication
     Dosage: 0.25 MILLILITER, QD
     Route: 058
     Dates: start: 20230817
  3. TEDUGLUTIDE [Suspect]
     Active Substance: TEDUGLUTIDE
     Indication: Product used for unknown indication
     Dosage: 0.25 MILLILITER, QD
     Route: 058
     Dates: start: 20230817
  4. TEDUGLUTIDE [Suspect]
     Active Substance: TEDUGLUTIDE
     Indication: Product used for unknown indication
     Dosage: 0.25 MILLILITER, QD
     Route: 058
     Dates: start: 20230817

REACTIONS (4)
  - Gastroenteritis viral [Not Recovered/Not Resolved]
  - Gastrointestinal oedema [Unknown]
  - Viral infection [Unknown]
  - Oedema peripheral [Recovered/Resolved]

NARRATIVE: CASE EVENT DATE: 20231120
